FAERS Safety Report 17117769 (Version 5)
Quarter: 2020Q1

REPORT INFORMATION
  Report Type: Spontaneous
  Country: US (occurrence: US)
  Receive Date: 20191205
  Receipt Date: 20200121
  Transmission Date: 20200409
  Serious: Yes (Disabling, Other)
  Sender: FDA-Public Use
  Company Number: US-OTSUKA-2018_024838

PATIENT
  Sex: Male

DRUGS (13)
  1. ZYPREXA [Concomitant]
     Active Substance: OLANZAPINE
     Indication: PRODUCT USED FOR UNKNOWN INDICATION
     Dosage: UNK
     Route: 065
  2. ABILIFY [Suspect]
     Active Substance: ARIPIPRAZOLE
     Indication: MANIA
     Dosage: 15 MG, UNK
     Route: 048
     Dates: end: 20030722
  3. LATUDA [Concomitant]
     Active Substance: LURASIDONE HYDROCHLORIDE
     Indication: PRODUCT USED FOR UNKNOWN INDICATION
     Dosage: 160 MG, QD
     Route: 065
  4. ABILIFY [Suspect]
     Active Substance: ARIPIPRAZOLE
     Indication: POST-TRAUMATIC STRESS DISORDER
     Dosage: 30 MG, QD
     Route: 048
     Dates: end: 20170415
  5. ABILIFY [Suspect]
     Active Substance: ARIPIPRAZOLE
     Indication: DEPRESSION
  6. MOTRIN [Concomitant]
     Active Substance: IBUPROFEN
     Indication: PRODUCT USED FOR UNKNOWN INDICATION
     Dosage: 800 MG, UNK
     Route: 065
  7. PERCOCET [Concomitant]
     Active Substance: ACETAMINOPHEN\OXYCODONE HYDROCHLORIDE
     Indication: PRODUCT USED FOR UNKNOWN INDICATION
     Dosage: 5-325 MG (EVERY 4-6 H PRN)
     Route: 048
  8. ADVIL [Concomitant]
     Active Substance: IBUPROFEN
     Indication: PRODUCT USED FOR UNKNOWN INDICATION
     Dosage: 800 MG, UNK
     Route: 065
  9. ABILIFY [Suspect]
     Active Substance: ARIPIPRAZOLE
     Indication: BIPOLAR I DISORDER
  10. ARIPIPRAZOLE. [Concomitant]
     Active Substance: ARIPIPRAZOLE
     Indication: PRODUCT USED FOR UNKNOWN INDICATION
     Dosage: UNK
     Route: 065
     Dates: end: 20170315
  11. VITAMIN B6 [Concomitant]
     Active Substance: PYRIDOXINE HYDROCHLORIDE
     Indication: PRODUCT USED FOR UNKNOWN INDICATION
     Dosage: 50 MG, TID
     Route: 048
  12. LATUDA [Concomitant]
     Active Substance: LURASIDONE HYDROCHLORIDE
     Dosage: 40 MG, UNK
     Route: 065
  13. DEPAKOTE [Concomitant]
     Active Substance: DIVALPROEX SODIUM
     Indication: PRODUCT USED FOR UNKNOWN INDICATION
     Dosage: UNK
     Route: 065
     Dates: end: 20080219

REACTIONS (38)
  - Limb injury [Recovered/Resolved]
  - Road traffic accident [Unknown]
  - Obesity [Unknown]
  - Blood lactate dehydrogenase increased [Unknown]
  - Blood prolactin decreased [Not Recovered/Not Resolved]
  - Arthralgia [Unknown]
  - Gamma-glutamyltransferase increased [Unknown]
  - Chest pain [Unknown]
  - Compulsive shopping [Recovered/Resolved]
  - Cubital tunnel syndrome [Unknown]
  - Pain in extremity [Unknown]
  - Aspartate aminotransferase increased [Unknown]
  - Low density lipoprotein increased [Not Recovered/Not Resolved]
  - Back pain [Unknown]
  - Weight increased [Unknown]
  - Product use in unapproved indication [Unknown]
  - Musculoskeletal pain [Unknown]
  - Alanine aminotransferase increased [Not Recovered/Not Resolved]
  - Gambling disorder [Recovered/Resolved]
  - Loss of employment [Unknown]
  - Paraesthesia [Unknown]
  - Obsessive-compulsive disorder [Recovered/Resolved]
  - Suicide attempt [Recovered/Resolved]
  - Suicidal ideation [Recovered/Resolved]
  - Limb injury [Unknown]
  - Hyperlipidaemia [Unknown]
  - Economic problem [Unknown]
  - Drug abuse [Unknown]
  - Concussion [Unknown]
  - Urine cannabinoids increased [Unknown]
  - Metatarsalgia [Unknown]
  - Plantar fasciitis [Unknown]
  - Anxiety [Unknown]
  - Carpal tunnel syndrome [Unknown]
  - Monocyte count increased [Unknown]
  - Blood triglycerides increased [Not Recovered/Not Resolved]
  - Eating disorder [Recovered/Resolved]
  - Condition aggravated [Recovered/Resolved]

NARRATIVE: CASE EVENT DATE: 2002
